FAERS Safety Report 21151806 (Version 1)
Quarter: 2022Q3

REPORT INFORMATION
  Report Type: Spontaneous
  Country: NL (occurrence: NL)
  Receive Date: 20220730
  Receipt Date: 20220730
  Transmission Date: 20221027
  Serious: Yes (Life-Threatening, Hospitalization)
  Sender: FDA-Public Use
  Company Number: NL-MACLEODS PHARMACEUTICALS US LTD-MAC2022036591

PATIENT

DRUGS (1)
  1. OLMESARTAN [Suspect]
     Active Substance: OLMESARTAN
     Indication: Infection
     Dosage: 160 MILLIGRAM, QD
     Route: 065

REACTIONS (6)
  - Bone marrow failure [Recovered/Resolved]
  - Thrombocytopenia [Recovered/Resolved]
  - Normocytic anaemia [Recovered/Resolved]
  - Respiratory failure [Unknown]
  - Pancytopenia [Recovered/Resolved]
  - Extra dose administered [Unknown]
